FAERS Safety Report 5864386-3 (Version None)
Quarter: 2008Q3

REPORT INFORMATION
  Report Type: 
  Country: None (occurrence: None)
  Receive Date: 20080829
  Receipt Date: 20080627
  Transmission Date: 20090109
  Serious: No
  Sender: FDA-Public Use
  Company Number: US-ABBOTT-08P-163-0459934-00

PATIENT
  Sex: Male

DRUGS (3)
  1. SIMCOR [Suspect]
     Indication: DYSLIPIDAEMIA
     Dosage: 750/20MG (TOTAL DAILY DOSE) 750/20MG DAILY
     Route: 048
     Dates: start: 20080613
  2. ZIAC 5/60 [Concomitant]
     Indication: HYPERTENSION
     Route: 048
  3. IBUPROFEN [Concomitant]
     Indication: DRUG USE FOR UNKNOWN INDICATION

REACTIONS (3)
  - BACK PAIN [None]
  - BLOOD URIC ACID INCREASED [None]
  - PRURITUS [None]
